FAERS Safety Report 6931527-6 (Version None)
Quarter: 2010Q3

REPORT INFORMATION
  Report Type: 
  Country: None (occurrence: None)
  Receive Date: 20100819
  Receipt Date: 20100805
  Transmission Date: 20110219
  Serious: Yes (Death)
  Sender: FDA-Public Use
  Company Number: IN-RANBAXY-2010RR-37278

PATIENT
  Age: 38 Year
  Sex: Male

DRUGS (1)
  1. PHENOBARBITAL [Suspect]
     Indication: SUICIDE ATTEMPT
     Dosage: UNK MG, UNK
     Route: 048

REACTIONS (1)
  - OVERDOSE [None]
